FAERS Safety Report 10228031 (Version 2)
Quarter: 2014Q2

REPORT INFORMATION
  Report Type: Spontaneous
  Country: US (occurrence: None)
  Receive Date: 20140606
  Receipt Date: 20140624
  Transmission Date: 20141212
  Serious: Yes (Other)
  Sender: FDA-Public Use
  Company Number: SYM-2014-21291

PATIENT
  Age: 48 Year
  Sex: Female
  Weight: 56.25 kg

DRUGS (2)
  1. BONTRIL PDM [Suspect]
     Indication: WEIGHT DECREASED
     Dosage: 3 IN 1 D, ORAL
     Route: 048
     Dates: start: 20140326, end: 20140406
  2. SUDAFED (PSEUDOEPHEDRINE HYDROCHLORIDE) (PSEUDOEPHEDRINE HYDROCHLORIDE) [Concomitant]

REACTIONS (7)
  - Vision blurred [None]
  - Confusional state [None]
  - Anxiety [None]
  - Palpitations [None]
  - Dizziness [None]
  - Vertigo [None]
  - Altered visual depth perception [None]
